FAERS Safety Report 22146098 (Version 5)
Quarter: 2023Q2

REPORT INFORMATION
  Report Type: Spontaneous
  Country: US (occurrence: US)
  Receive Date: 20230328
  Receipt Date: 20230530
  Transmission Date: 20230722
  Serious: No
  Sender: FDA-Public Use
  Company Number: US-PFIZER INC-202300127329

PATIENT
  Age: 11 Year
  Sex: Male
  Weight: 26.76 kg

DRUGS (1)
  1. GENOTROPIN [Suspect]
     Active Substance: SOMATROPIN
     Indication: Short stature
     Dosage: 1.2 UNKNOWN UNIT INJECTED 6 NIGHTS PER WEEK
     Dates: start: 20230307

REACTIONS (4)
  - Incorrect dose administered by device [Unknown]
  - Device malfunction [Unknown]
  - Device difficult to use [Unknown]
  - Device leakage [Unknown]
